FAERS Safety Report 15542437 (Version 3)
Quarter: 2019Q1

REPORT INFORMATION
  Report Type: Spontaneous
  Country: US (occurrence: US)
  Receive Date: 20181023
  Receipt Date: 20190102
  Transmission Date: 20190417
  Serious: No
  Sender: FDA-Public Use
  Company Number: US-PFIZER INC-2018429511

PATIENT
  Age: 55 Year
  Sex: Female
  Weight: 63.5 kg

DRUGS (3)
  1. HYDROCODONE [Suspect]
     Active Substance: HYDROCODONE
     Dosage: UNK
  2. LORCET [Suspect]
     Active Substance: ACETAMINOPHEN\HYDROCODONE BITARTRATE
     Dosage: UNK
  3. DEMEROL [Suspect]
     Active Substance: MEPERIDINE HYDROCHLORIDE
     Dosage: UNK

REACTIONS (1)
  - Drug hypersensitivity [Unknown]
